FAERS Safety Report 5942510-1 (Version None)
Quarter: 2008Q4

REPORT INFORMATION
  Report Type: 
  Country: None (occurrence: None)
  Receive Date: 20081105
  Receipt Date: 20081024
  Transmission Date: 20090506
  Serious: Yes (Hospitalization)
  Sender: FDA-Public Use
  Company Number: NO-PFIZER INC-2008090388

PATIENT
  Sex: Male

DRUGS (4)
  1. SUTENT [Suspect]
     Indication: RENAL CANCER METASTATIC
     Route: 048
     Dates: start: 20080826, end: 20080922
  2. FRAGMIN [Concomitant]
     Route: 051
  3. LEVOTHYROXINE SODIUM [Concomitant]
     Route: 048
  4. ARANESP [Concomitant]
     Route: 051

REACTIONS (1)
  - RENAL FAILURE ACUTE [None]
